FAERS Safety Report 5110921-2 (Version None)
Quarter: 2006Q3

REPORT INFORMATION
  Report Type: 
  Country: None (occurrence: None)
  Receive Date: 20060919
  Receipt Date: 20060913
  Transmission Date: 20061208
  Serious: Yes (Hospitalization, Other)
  Sender: FDA-Public Use
  Company Number: 2006081173

PATIENT
  Age: 81 Year
  Sex: Female
  Weight: 43.1 kg

DRUGS (4)
  1. LIPITOR [Suspect]
     Indication: HYPERLIPIDAEMIA
     Dosage: 10 MG (10 MG, 1 IN 1 D), ORAL
     Route: 048
     Dates: start: 20040820, end: 20060623
  2. OMEPRAZOLE [Concomitant]
  3. ATELEC (CILNIDIPINE) [Concomitant]
  4. ELCITONIN (ELCATONIN) [Concomitant]

REACTIONS (9)
  - ABASIA [None]
  - DECREASED APPETITE [None]
  - DEHYDRATION [None]
  - DYSSTASIA [None]
  - GAIT DISTURBANCE [None]
  - PYREXIA [None]
  - RENAL FAILURE ACUTE [None]
  - RHABDOMYOLYSIS [None]
  - URINARY TRACT INFECTION [None]
